FAERS Safety Report 24193603 (Version 1)
Quarter: 2024Q3

REPORT INFORMATION
  Report Type: Spontaneous
  Country: PT (occurrence: PT)
  Receive Date: 20240809
  Receipt Date: 20240809
  Transmission Date: 20241016
  Serious: Yes (Hospitalization, Other)
  Sender: RANBAXY
  Company Number: PT-SUN PHARMACEUTICAL INDUSTRIES LTD-2024R1-461471

PATIENT
  Age: 47 Year
  Sex: Male

DRUGS (1)
  1. PHENYTOIN [Suspect]
     Active Substance: PHENYTOIN
     Indication: Epilepsy
     Dosage: 200 MILLIGRAM, BID
     Route: 065

REACTIONS (5)
  - Toxicity to various agents [Unknown]
  - Nystagmus [Unknown]
  - Dysarthria [Unknown]
  - Ataxia [Unknown]
  - Gait disturbance [Unknown]
